FAERS Safety Report 22240745 (Version 1)
Quarter: 2023Q2

REPORT INFORMATION
  Report Type: Spontaneous
  Country: US (occurrence: None)
  Receive Date: 20230419
  Receipt Date: 20230419
  Transmission Date: 20230722
  Serious: Yes (Other)
  Sender: FDA-Public Use
  Company Number: None

PATIENT
  Sex: Female
  Weight: 55.79 kg

DRUGS (19)
  1. RECLAST [Suspect]
     Active Substance: ZOLEDRONIC ACID
  2. DEXILANT [Concomitant]
     Active Substance: DEXLANSOPRAZOLE
  3. LASIX [Concomitant]
     Active Substance: FUROSEMIDE
  4. MOTEGRITY [Concomitant]
     Active Substance: PRUCALOPRIDE SUCCINATE
  5. ZOFRAN [Concomitant]
     Active Substance: ONDANSETRON HYDROCHLORIDE
  6. CARAFATE [Concomitant]
     Active Substance: SUCRALFATE
  7. Hyosamine [Concomitant]
  8. METOCLOPRAMIDE [Concomitant]
     Active Substance: METOCLOPRAMIDE
  9. SYNTHROID [Concomitant]
     Active Substance: LEVOTHYROXINE SODIUM
  10. DIAZEPAM [Concomitant]
     Active Substance: DIAZEPAM
  11. MINERALS\VITAMINS [Concomitant]
     Active Substance: MINERALS\VITAMINS
  12. URSODIOL [Concomitant]
     Active Substance: URSODIOL
  13. WELLBUTRIN [Concomitant]
     Active Substance: BUPROPION HYDROCHLORIDE
  14. CLONAZEPAM [Concomitant]
     Active Substance: CLONAZEPAM
  15. D-C-Zinc [Concomitant]
  16. POTASSIUM [Concomitant]
     Active Substance: POTASSIUM
  17. MONTELUKAST [Concomitant]
     Active Substance: MONTELUKAST SODIUM
  18. VITAMIN D [Concomitant]
     Active Substance: VITAMIN D NOS
  19. MIRALAX [Concomitant]
     Active Substance: POLYETHYLENE GLYCOL 3350

REACTIONS (25)
  - Pain [None]
  - Dehydration [None]
  - Asthenia [None]
  - Erythema [None]
  - Tooth disorder [None]
  - Burning sensation [None]
  - Limb discomfort [None]
  - Foot deformity [None]
  - Fungal infection [None]
  - Oesophageal infection [None]
  - Gallbladder disorder [None]
  - Bone pain [None]
  - Eye pain [None]
  - Dyspnoea [None]
  - Confusional state [None]
  - Dysphagia [None]
  - Throat tightness [None]
  - Palpitations [None]
  - Weight increased [None]
  - Micturition disorder [None]
  - Joint swelling [None]
  - Gastric disorder [None]
  - Bacterial infection [None]
  - Oesophageal carcinoma [None]
  - Impaired quality of life [None]
